FAERS Safety Report 10083718 (Version 1)
Quarter: 2014Q2

REPORT INFORMATION
  Report Type: Spontaneous
  Country: US (occurrence: US)
  Receive Date: 20140417
  Receipt Date: 20140417
  Transmission Date: 20141212
  Serious: No
  Sender: FDA-Public Use
  Company Number: US-PFIZER INC-2014107853

PATIENT
  Age: 45 Year
  Sex: Female

DRUGS (2)
  1. CABERGOLINE [Suspect]
     Dosage: 3 DF, WEEKLY
     Dates: start: 201307
  2. CABERGOLINE [Suspect]
     Dosage: 4 DF, WEEKLY

REACTIONS (1)
  - Dizziness [Unknown]
